FAERS Safety Report 4264833-7 (Version None)
Quarter: 2004Q1

REPORT INFORMATION
  Report Type: 
  Country: None (occurrence: None)
  Receive Date: 20040105
  Receipt Date: 20040105
  Transmission Date: 20041129
  Serious: Yes (Hospitalization)
  Sender: FDA-Public Use
  Company Number: 200314845FR

PATIENT
  Age: 87 Year
  Sex: Female

DRUGS (5)
  1. RIFAMPICIN [Suspect]
     Indication: BONE TUBERCULOSIS
     Dosage: 4 U/DAY PO/ A FEW MONTHS
     Dates: end: 20031106
  2. RIFAMPICIN [Suspect]
     Indication: PULMONARY TUBERCULOSIS
     Dosage: 4 U/DAY PO/ A FEW MONTHS
     Dates: end: 20031106
  3. ISONIAZID [Suspect]
     Indication: BONE TUBERCULOSIS
     Dosage: 50 MG/DAY PO/ A FEW MONTHS
     Dates: end: 20031106
  4. ISONIAZID [Suspect]
     Indication: PULMONARY TUBERCULOSIS
     Dosage: 50 MG/DAY PO/ A FEW MONTHS
     Dates: end: 20031106
  5. AMOXICILLIN TRIHYDRATE [Concomitant]

REACTIONS (8)
  - ABDOMINAL PAIN [None]
  - ASTHENIA [None]
  - BLOOD AMYLASE INCREASED [None]
  - BRONCHITIS [None]
  - CHOLELITHIASIS [None]
  - LIPASE INCREASED [None]
  - PANCREATITIS ACUTE [None]
  - VOMITING [None]
